FAERS Safety Report 5531484-3 (Version None)
Quarter: 2007Q4

REPORT INFORMATION
  Report Type: 
  Country: None (occurrence: None)
  Receive Date: 20071203
  Receipt Date: 20071125
  Transmission Date: 20080405
  Serious: Yes (Other)
  Sender: FDA-Public Use
  Company Number: PHBS2007SE06694

PATIENT
  Age: 32 Year
  Sex: Female
  Weight: 63 kg

DRUGS (1)
  1. VOLTAREN [Suspect]
     Indication: TORTICOLLIS
     Route: 061

REACTIONS (7)
  - BLISTER [None]
  - EATING DISORDER [None]
  - HYPERSENSITIVITY [None]
  - MALAISE [None]
  - OBSTRUCTIVE AIRWAYS DISORDER [None]
  - SWOLLEN TONGUE [None]
  - WEIGHT DECREASED [None]
